FAERS Safety Report 7310331-3 (Version None)
Quarter: 2011Q1

REPORT INFORMATION
  Report Type: 
  Country: None (occurrence: None)
  Receive Date: 20110224
  Receipt Date: 20110215
  Transmission Date: 20110831
  Serious: Yes (Death)
  Sender: FDA-Public Use
  Company Number: FR-BRISTOL-MYERS SQUIBB COMPANY-15343130

PATIENT
  Age: 71 Year
  Sex: Female

DRUGS (1)
  1. ORENCIA [Suspect]
     Dosage: NO.OF INF: 17 LAST DOSE: JUN-2010
     Route: 042
     Dates: end: 20100622

REACTIONS (3)
  - SUPERINFECTION [None]
  - LUNG DISORDER [None]
  - HERPES SIMPLEX [None]
